FAERS Safety Report 14826107 (Version 1)
Quarter: 2018Q2

REPORT INFORMATION
  Report Type: Spontaneous
  Country: FR (occurrence: FR)
  Receive Date: 20180430
  Receipt Date: 20180430
  Transmission Date: 20180711
  Serious: Yes (Other)
  Sender: FDA-Public Use
  Company Number: FR-MERCK KGAA-2046813

PATIENT
  Age: 56 Year
  Sex: Female
  Weight: 56 kg

DRUGS (2)
  1. NOVOTHYROX [Suspect]
     Active Substance: LEVOTHYROXINE SODIUM
     Indication: THYROIDECTOMY
     Route: 048
     Dates: start: 201704, end: 201801
  2. CARDENSIEL [Concomitant]
     Active Substance: BISOPROLOL FUMARATE
     Dates: start: 201705

REACTIONS (11)
  - Abdominal pain [Recovered/Resolved]
  - Arthralgia [Recovered/Resolved]
  - Vertigo [Recovered/Resolved]
  - Fatigue [Recovered/Resolved]
  - Palpitations [Recovered/Resolved]
  - Product formulation issue [Recovered/Resolved]
  - Malaise [Recovered/Resolved]
  - Cardiac disorder [Recovered/Resolved]
  - Blood thyroid stimulating hormone [Recovered/Resolved]
  - Arrhythmia [Recovered/Resolved]
  - Tension [Recovered/Resolved]

NARRATIVE: CASE EVENT DATE: 201705
